FAERS Safety Report 10173483 (Version 1)
Quarter: 2014Q2

REPORT INFORMATION
  Report Type: Spontaneous
  Country: US (occurrence: None)
  Receive Date: 20140514
  Receipt Date: 20140514
  Transmission Date: 20141212
  Serious: Yes (Hospitalization, Disabling, Other)
  Sender: FDA-Public Use
  Company Number: None

PATIENT
  Age: 42 Year
  Sex: Male
  Weight: 99.79 kg

DRUGS (1)
  1. STELARA [Suspect]
     Indication: PSORIASIS
     Dosage: EVERY 10 WEEKS, GIVEN INTO/UNDER THE SKIN?
     Dates: start: 20121115, end: 20140401

REACTIONS (5)
  - Sensory loss [None]
  - Myelitis transverse [None]
  - Nervous system disorder [None]
  - Autoimmune disorder [None]
  - Infection [None]
